FAERS Safety Report 8809432 (Version 1)
Quarter: 2012Q4

REPORT INFORMATION
  Report Type: 
  Country: GB (occurrence: GB)
  Receive Date: 20120926
  Receipt Date: 20120926
  Transmission Date: 20130627
  Serious: Yes (Other)
  Sender: FDA-Public Use
  Company Number: GB-ABBOTT-12P-167-0986019-00

PATIENT
  Age: 63 Year
  Sex: Male

DRUGS (3)
  1. PROSTAPHLIN [Suspect]
     Indication: PROSTATE CANCER
     Route: 030
     Dates: start: 20110926, end: 20120816
  2. LISINOPRIL (LISINOPRIL) [Concomitant]
     Indication: HYPERTENSION
     Route: 048
     Dates: start: 20090302
  3. TADALAFIL [Concomitant]
     Indication: ERECTILE DYSFUNCTION
     Dosage: As necessary
     Route: 048
     Dates: start: 20040712

REACTIONS (3)
  - Incorrect route of drug administration [Unknown]
  - Injection site abscess [Recovered/Resolved]
  - Injection site cellulitis [Recovered/Resolved]
